FAERS Safety Report 7942545-3 (Version None)
Quarter: 2011Q4

REPORT INFORMATION
  Report Type: 
  Country: None (occurrence: None)
  Receive Date: 20111128
  Receipt Date: 20111118
  Transmission Date: 20120403
  Serious: Yes (Congenital Anomaly)
  Sender: FDA-Public Use
  Company Number: FR-GLAXOSMITHKLINE-B0763730A

PATIENT
  Sex: Male

DRUGS (2)
  1. LAMICTAL [Suspect]
     Indication: EPILEPSY
     Route: 064
     Dates: start: 20100101, end: 20110531
  2. URBANYL [Concomitant]
     Dosage: 5MG PER DAY
     Route: 064

REACTIONS (6)
  - PERIVENTRICULAR LEUKOMALACIA [None]
  - METABOLIC DISORDER [None]
  - CEREBRAL VENTRICLE DILATATION [None]
  - CONGENITAL BRAIN DAMAGE [None]
  - FOETAL EXPOSURE DURING PREGNANCY [None]
  - CEREBRAL CALCIFICATION [None]
